FAERS Safety Report 10060285 (Version 1)
Quarter: 2014Q2

REPORT INFORMATION
  Report Type: Spontaneous
  Country: US (occurrence: US)
  Receive Date: 20140404
  Receipt Date: 20140404
  Transmission Date: 20141212
  Serious: Yes (Congenital Anomaly, Other)
  Sender: FDA-Public Use
  Company Number: US-JNJFOC-20140315370

PATIENT
  Sex: Male

DRUGS (3)
  1. RISPERDAL [Suspect]
     Indication: PAIN
     Route: 064
     Dates: start: 198901
  2. RISPERDAL [Suspect]
     Indication: INSOMNIA
     Route: 064
     Dates: start: 198901
  3. RISPERDAL [Suspect]
     Indication: DEPRESSION
     Route: 064
     Dates: start: 198901

REACTIONS (3)
  - Gynaecomastia [Not Recovered/Not Resolved]
  - Cardiac septal defect [Not Recovered/Not Resolved]
  - Foetal exposure during pregnancy [Recovered/Resolved]
